FAERS Safety Report 11573094 (Version 1)
Quarter: 2015Q3

REPORT INFORMATION
  Report Type: Spontaneous
  Country: US (occurrence: US)
  Receive Date: 20150929
  Receipt Date: 20150929
  Transmission Date: 20151125
  Serious: No
  Sender: FDA-Public Use
  Company Number: US-009507513-1509USA013293

PATIENT
  Age: 22 Year
  Sex: Female
  Weight: 60.5 kg

DRUGS (1)
  1. NEXPLANON [Suspect]
     Active Substance: ETONOGESTREL
     Indication: CONTRACEPTION
     Dosage: 1 ROD/3 YEARS
     Route: 059
     Dates: start: 20150327, end: 20150923

REACTIONS (5)
  - Pain [Recovering/Resolving]
  - Myalgia [Recovering/Resolving]
  - Device breakage [Unknown]
  - Product quality issue [Unknown]
  - Implant site inflammation [Recovering/Resolving]

NARRATIVE: CASE EVENT DATE: 20150921
